FAERS Safety Report 4886702-1 (Version None)
Quarter: 2006Q1

REPORT INFORMATION
  Report Type: 
  Country: None (occurrence: None)
  Receive Date: 20060120
  Receipt Date: 20060111
  Transmission Date: 20060701
  Serious: Yes (Other)
  Sender: FDA-Public Use
  Company Number: PHBS2006ES00726

PATIENT
  Age: 75 Year
  Sex: Male

DRUGS (3)
  1. MELPHALAN [Concomitant]
     Dates: start: 20030301, end: 20040323
  2. PREDNISONE [Concomitant]
     Dates: start: 20030301, end: 20040323
  3. ZOMETA [Suspect]
     Indication: MULTIPLE MYELOMA
     Route: 065
     Dates: start: 20030301

REACTIONS (6)
  - FISTULA [None]
  - LOCAL SWELLING [None]
  - ORAL PAIN [None]
  - OSTEONECROSIS [None]
  - PURULENT DISCHARGE [None]
  - TOOTH EXTRACTION [None]
